FAERS Safety Report 15008756 (Version 1)
Quarter: 2018Q2

REPORT INFORMATION
  Report Type: Spontaneous
  Country: US (occurrence: US)
  Receive Date: 20180521
  Receipt Date: 20180521
  Transmission Date: 20180711
  Serious: No
  Sender: FDA-Public Use
  Company Number: None

PATIENT
  Age: 74 Year
  Sex: Male

DRUGS (5)
  1. DEXAMETHASONE. [Concomitant]
     Active Substance: DEXAMETHASONE
  2. FENTANYL. [Concomitant]
     Active Substance: FENTANYL
  3. PROPOFOL. [Concomitant]
     Active Substance: PROPOFOL
  4. CEFAZOLIN [Suspect]
     Active Substance: CEFAZOLIN
     Indication: SURGERY
     Route: 042
     Dates: start: 20170711, end: 20170711
  5. VECURONIUM [Concomitant]
     Active Substance: VECURONIUM BROMIDE

REACTIONS (3)
  - Rash [None]
  - Flushing [None]
  - Hypotension [None]

NARRATIVE: CASE EVENT DATE: 20170711
